FAERS Safety Report 6334779-9 (Version None)
Quarter: 2009Q3

REPORT INFORMATION
  Report Type: 
  Country: None (occurrence: None)
  Receive Date: 20090831
  Receipt Date: 20090821
  Transmission Date: 20100115
  Serious: Yes (Hospitalization, Other)
  Sender: FDA-Public Use
  Company Number: BR-ABBOTT-09P-020-0591700-00

PATIENT
  Sex: Female

DRUGS (8)
  1. HUMIRA [Suspect]
     Indication: RHEUMATOID ARTHRITIS
     Route: 058
  2. AMITRIPTYLINE HYDROCHLORIDE [Suspect]
     Indication: DEPRESSION
     Route: 048
  3. PANTOPRAZOLE SODIUM [Concomitant]
     Indication: GASTROINTESTINAL DISORDER
     Route: 048
  4. FOLIC ACID [Concomitant]
     Indication: FOLATE DEFICIENCY
     Route: 048
  5. PREDNISOLONE [Concomitant]
     Indication: ANTIINFLAMMATORY THERAPY
     Route: 048
  6. LEFLUNOMIDE [Concomitant]
     Indication: RHEUMATOID ARTHRITIS
     Dosage: EXCEPT ON SUNDAYS
     Route: 048
  7. ALENDRONATE SODIUM [Concomitant]
     Indication: OSTEOPOROSIS
     Dosage: EXCEPT SUNDAYS
     Route: 048
  8. NAPROXEN SODIUM [Concomitant]
     Indication: ARTHRALGIA

REACTIONS (13)
  - BLOOD CHOLESTEROL INCREASED [None]
  - DEPRESSION [None]
  - DIARRHOEA [None]
  - FEMUR FRACTURE [None]
  - FOOT FRACTURE [None]
  - HEADACHE [None]
  - HYPERTENSION [None]
  - MALAISE [None]
  - NAUSEA [None]
  - PYREXIA [None]
  - SOMNOLENCE [None]
  - VOMITING [None]
  - WEIGHT INCREASED [None]
